FAERS Safety Report 9646111 (Version 1)
Quarter: 2013Q4

REPORT INFORMATION
  Report Type: Spontaneous
  Country: US (occurrence: US)
  Receive Date: 20131025
  Receipt Date: 20131025
  Transmission Date: 20140711
  Serious: Yes (Death, Other)
  Sender: FDA-Public Use
  Company Number: US-BRISTOL-MYERS SQUIBB COMPANY-19576412

PATIENT
  Age: 93 Year
  Sex: Male

DRUGS (3)
  1. ABILIFY [Suspect]
  2. SEROQUEL [Suspect]
  3. ARICEPT [Suspect]

REACTIONS (6)
  - Renal failure acute [Fatal]
  - Dehydration [Unknown]
  - Aspiration [Unknown]
  - Dysphagia [Unknown]
  - Gait disturbance [Unknown]
  - Insomnia [Unknown]
